FAERS Safety Report 7070136-8 (Version None)
Quarter: 2010Q4

REPORT INFORMATION
  Report Type: 
  Country: None (occurrence: None)
  Receive Date: 20101028
  Receipt Date: 20100830
  Transmission Date: 20110411
  Serious: No
  Sender: FDA-Public Use
  Company Number: US-WYE-H17271710

PATIENT
  Age: 45 Year
  Sex: Female

DRUGS (1)
  1. ADVIL [Suspect]
     Indication: HEADACHE
     Dosage: 1 LIQUIGEL 1 TIME
     Route: 048
     Dates: start: 20100830, end: 20100830

REACTIONS (2)
  - PARAESTHESIA ORAL [None]
  - WRONG TECHNIQUE IN DRUG USAGE PROCESS [None]
